FAERS Safety Report 7275826-X (Version None)
Quarter: 2011Q1

REPORT INFORMATION
  Report Type: 
  Country: None (occurrence: None)
  Receive Date: 20110204
  Receipt Date: 20110203
  Transmission Date: 20110831
  Serious: Yes (Other)
  Sender: FDA-Public Use
  Company Number: A0908007A

PATIENT
  Age: 49 Year
  Sex: Male
  Weight: 79 kg

DRUGS (1)
  1. EQUATE NTS 21MG, CLEAR [Suspect]
     Indication: SMOKING CESSATION THERAPY
     Dosage: 21MG UNKNOWN
     Route: 062
     Dates: start: 20110116, end: 20110117

REACTIONS (6)
  - EATING DISORDER [None]
  - HEADACHE [None]
  - DRUG ADMINISTRATION ERROR [None]
  - VIITH NERVE PARALYSIS [None]
  - NAUSEA [None]
  - EYE DISORDER [None]
